FAERS Safety Report 19641673 (Version 1)
Quarter: 2021Q3

REPORT INFORMATION
  Report Type: Spontaneous
  Country: US (occurrence: US)
  Receive Date: 20210731
  Receipt Date: 20210731
  Transmission Date: 20211014
  Serious: No
  Sender: FDA-Public Use
  Company Number: US-HETERO-HET2021US01484

PATIENT

DRUGS (1)
  1. PREGABALIN. [Suspect]
     Active Substance: PREGABALIN
     Indication: PRODUCT USED FOR UNKNOWN INDICATION
     Dosage: 75 MILIGRAM, UNK
     Route: 048
     Dates: start: 20210721

REACTIONS (3)
  - Product substitution issue [Unknown]
  - Feeling abnormal [Unknown]
  - Sciatica [Unknown]

NARRATIVE: CASE EVENT DATE: 20210721
